FAERS Safety Report 12088426 (Version 1)
Quarter: 2016Q1

REPORT INFORMATION
  Report Type: Spontaneous
  Country: US (occurrence: US)
  Receive Date: 20160218
  Receipt Date: 20160218
  Transmission Date: 20160526
  Serious: Yes (Other)
  Sender: FDA-Public Use
  Company Number: US-ROCHE-1710098

PATIENT
  Sex: Female

DRUGS (7)
  1. NUTROPIN [Suspect]
     Active Substance: SOMATROPIN
     Indication: ADDISON^S DISEASE
     Dosage: 0.2 FOR FEW MONTHS, THEN 0.3 FOR FEW MONTHS, 0.4?NUTROPIN PEN
     Route: 065
  2. DEXAMETHASONE. [Concomitant]
     Active Substance: DEXAMETHASONE
  3. PROGESTERONE. [Concomitant]
     Active Substance: PROGESTERONE
  4. NUTROPIN [Suspect]
     Active Substance: SOMATROPIN
     Indication: DWARFISM
  5. CORTEF [Concomitant]
     Active Substance: HYDROCORTISONE
  6. VITAMIN B12 [Concomitant]
     Active Substance: CYANOCOBALAMIN
     Route: 065
  7. SYNTHROID [Concomitant]
     Active Substance: LEVOTHYROXINE SODIUM

REACTIONS (4)
  - Sleep disorder [Unknown]
  - Decreased appetite [Unknown]
  - Drug ineffective [Unknown]
  - Mental disorder [Not Recovered/Not Resolved]
